FAERS Safety Report 18866512 (Version 2)
Quarter: 2021Q4

REPORT INFORMATION
  Report Type: Spontaneous
  Country: PT (occurrence: PT)
  Receive Date: 20210208
  Receipt Date: 20211104
  Transmission Date: 20220303
  Serious: Yes (Life-Threatening)
  Sender: FDA-Public Use
  Company Number: None

PATIENT
  Age: 77 Year
  Sex: Female
  Weight: 65 kg

DRUGS (7)
  1. VEKLURY [Suspect]
     Active Substance: REMDESIVIR
     Indication: COVID-19 pneumonia
     Dosage: 100 MG, QD
     Route: 042
     Dates: start: 20210120, end: 20210121
  2. TRIMETAZIDINE [Concomitant]
     Active Substance: TRIMETAZIDINE
     Dosage: 35 MG, QD
     Route: 048
     Dates: start: 20201204
  3. CALCIUM GLUCONATE [Concomitant]
     Active Substance: CALCIUM GLUCONATE
     Dosage: 1 G, QD
     Route: 042
     Dates: start: 20210120, end: 20210121
  4. ALPRAZOLAM [Concomitant]
     Active Substance: ALPRAZOLAM
     Dosage: UNK
     Route: 048
     Dates: start: 20210120, end: 20210121
  5. QUETIAPINA ROCOZ SR [Concomitant]
     Dosage: 50 MG, QD
     Route: 048
     Dates: start: 20210120, end: 20210121
  6. ESCITALOPRAM AZEVEDOS [Concomitant]
     Dosage: 10 MG, QD
     Route: 048
     Dates: start: 20200702
  7. CODEINE;PHENYLTOLOXAMINE [Concomitant]
     Route: 048
     Dates: start: 20210120, end: 20210121

REACTIONS (1)
  - Sinus bradycardia [Recovered/Resolved]

NARRATIVE: CASE EVENT DATE: 20210121
